FAERS Safety Report 17150702 (Version 2)
Quarter: 2020Q1

REPORT INFORMATION
  Report Type: Spontaneous
  Country: US (occurrence: US)
  Receive Date: 20191213
  Receipt Date: 20200205
  Transmission Date: 20200409
  Serious: No
  Sender: FDA-Public Use
  Company Number: US-SA-2019SA346269

PATIENT
  Age: 49 Year
  Sex: Male
  Weight: 111.11 kg

DRUGS (2)
  1. EUCRISA [Concomitant]
     Active Substance: CRISABOROLE
     Indication: DERMATITIS ATOPIC
     Dosage: 2 %, BID
     Route: 061
     Dates: start: 20190708
  2. DUPIXENT [Suspect]
     Active Substance: DUPILUMAB
     Indication: DERMATITIS ATOPIC
     Dosage: 200 MG, QOW
     Route: 058
     Dates: start: 20190806

REACTIONS (3)
  - Back pain [Recovering/Resolving]
  - Herpes zoster [Recovering/Resolving]
  - Rash vesicular [Recovering/Resolving]

NARRATIVE: CASE EVENT DATE: 20191210
